FAERS Safety Report 25040134 (Version 1)
Quarter: 2025Q1

REPORT INFORMATION
  Report Type: Report from Study
  Country: US (occurrence: US)
  Receive Date: 20250305
  Receipt Date: 20250305
  Transmission Date: 20250409
  Serious: Yes (Other)
  Sender: ALEXION PHARMACEUTICALS
  Company Number: US-AstraZeneca-CH-00817962A

PATIENT
  Age: 95 Year

DRUGS (1)
  1. DAPAGLIFLOZIN [Suspect]
     Active Substance: DAPAGLIFLOZIN

REACTIONS (5)
  - Drug ineffective [Unknown]
  - Cardiac ablation [Unknown]
  - Atrial fibrillation [Unknown]
  - Arthropathy [Unknown]
  - Cardioversion [Unknown]
